FAERS Safety Report 15642337 (Version 2)
Quarter: 2018Q4

REPORT INFORMATION
  Report Type: Spontaneous
  Country: US (occurrence: US)
  Receive Date: 20181121
  Receipt Date: 20181219
  Transmission Date: 20190205
  Serious: No
  Sender: FDA-Public Use
  Company Number: US-DRREDDYS-USA/USA/18/0105226

PATIENT
  Age: 43 Year
  Sex: Female
  Weight: 88.63 kg

DRUGS (1)
  1. SUMATRIPTAN INJECTION USP, 6 MG/0.5 ML [Suspect]
     Active Substance: SUMATRIPTAN
     Indication: MIGRAINE
     Dosage: (6 MG PER 0.5 ML) PATIENT WAS USING SUMATRIPTAN INJECTION SINCE 18 YEARS.
     Route: 058

REACTIONS (2)
  - Product dose omission [Unknown]
  - Product quality issue [Unknown]

NARRATIVE: CASE EVENT DATE: 20181029
